FAERS Safety Report 19286600 (Version 2)
Quarter: 2021Q4

REPORT INFORMATION
  Report Type: Spontaneous
  Country: US (occurrence: US)
  Receive Date: 20210521
  Receipt Date: 20211122
  Transmission Date: 20220303
  Serious: Yes (Life-Threatening)
  Sender: FDA-Public Use
  Company Number: US-PFIZER INC-8-90176-001A

PATIENT
  Age: 68 Year
  Sex: Male

DRUGS (9)
  1. PROPRANOLOL [Suspect]
     Active Substance: PROPRANOLOL HYDROCHLORIDE
     Indication: Arrhythmia prophylaxis
     Dosage: 0.3 MG /DAY
     Route: 042
  2. PROPRANOLOL [Suspect]
     Active Substance: PROPRANOLOL HYDROCHLORIDE
     Dosage: 0.25 MG
     Route: 042
  3. CEFOXITIN [Concomitant]
     Active Substance: CEFOXITIN SODIUM
     Dosage: 1 G
     Route: 042
  4. ISOFLURANE [Concomitant]
     Active Substance: ISOFLURANE
     Indication: Anaesthesia
     Dosage: UNK
  5. MIDAZOLAM [Concomitant]
     Active Substance: MIDAZOLAM
     Indication: Premedication
     Dosage: 5 MG/KG
     Route: 030
  6. NITROUS OXIDE [Concomitant]
     Active Substance: NITROUS OXIDE
     Indication: Anaesthesia
  7. PANCURONIUM [Concomitant]
     Active Substance: PANCURONIUM
     Indication: Hypotonia
     Dosage: 8 MG
  8. THIAMYLAL [Concomitant]
     Active Substance: THIAMYLAL
     Indication: Anaesthesia
     Dosage: 5 MG/KG
  9. MORPHINE [Concomitant]
     Active Substance: MORPHINE
     Indication: Anaesthesia
     Dosage: 6 MG (1-MG INCREMENTS INTRAVENOUSLY OVER 30 MIN)
     Route: 042

REACTIONS (5)
  - Anaphylactic reaction [Unknown]
  - Tachycardia [Recovered/Resolved]
  - Hypotension [Recovered/Resolved]
  - Oedema [Recovered/Resolved]
  - Urticaria [Recovered/Resolved]
